FAERS Safety Report 17798403 (Version 1)
Quarter: 2020Q2

REPORT INFORMATION
  Report Type: Spontaneous
  Country: AL (occurrence: AL)
  Receive Date: 20200518
  Receipt Date: 20200518
  Transmission Date: 20200714
  Serious: Yes (Other)
  Sender: FDA-Public Use
  Company Number: AL-JNJFOC-20200511510

PATIENT
  Sex: Male

DRUGS (1)
  1. RIVAROXABAN [Suspect]
     Active Substance: RIVAROXABAN
     Indication: PULMONARY EMBOLISM
     Dosage: 15 MG, BID
     Route: 048

REACTIONS (4)
  - Haematuria [Unknown]
  - Anaemia [Unknown]
  - International normalised ratio decreased [Unknown]
  - Red blood cell abnormality [Unknown]
